FAERS Safety Report 8290014-6 (Version None)
Quarter: 2012Q2

REPORT INFORMATION
  Report Type: 
  Country: None (occurrence: None)
  Receive Date: 20120417
  Receipt Date: 20120403
  Transmission Date: 20120825
  Serious: Yes (Hospitalization)
  Sender: FDA-Public Use
  Company Number: US-MYLANLABS-2012S1007376

PATIENT
  Age: 68 Year
  Sex: Male

DRUGS (3)
  1. TACROLIMUS [Suspect]
     Indication: IMMUNOSUPPRESSION
     Route: 065
  2. PREDNISONE TAB [Suspect]
     Indication: IMMUNOSUPPRESSION
     Dosage: 5 MG/DAY
     Route: 065
  3. MYCOPHENOLATE MOFETIL [Suspect]
     Indication: IMMUNOSUPPRESSION
     Route: 065

REACTIONS (3)
  - GUILLAIN-BARRE SYNDROME [None]
  - ENCEPHALITIS VIRAL [None]
  - HERPES ZOSTER [None]
